FAERS Safety Report 15058226 (Version 1)
Quarter: 2018Q2

REPORT INFORMATION
  Report Type: Report from Study
  Country: None (occurrence: RO)
  Receive Date: 20180625
  Receipt Date: 20180625
  Transmission Date: 20180711
  Serious: Yes (Hospitalization)
  Sender: FDA-Public Use
  Company Number: RO-ABBVIE-18K-135-2394863-00

PATIENT
  Age: 55 Year
  Sex: Female

DRUGS (6)
  1. DETRALEX [Concomitant]
     Active Substance: DIOSMIN\HESPERIDIN
     Indication: CARDIOVASCULAR DISORDER
     Route: 048
  2. AFLAMIL [Concomitant]
     Active Substance: ACECLOFENAC
     Indication: ANKYLOSING SPONDYLITIS
     Route: 048
  3. SILYMARIN [Concomitant]
     Active Substance: DIETARY SUPPLEMENT\HERBALS\MILK THISTLE
     Indication: PROPHYLAXIS
     Route: 048
  4. SULFASALAZINE. [Concomitant]
     Active Substance: SULFASALAZINE
     Indication: ANKYLOSING SPONDYLITIS
     Route: 048
  5. HUMIRA [Suspect]
     Active Substance: ADALIMUMAB
     Indication: ANKYLOSING SPONDYLITIS
     Route: 058
     Dates: start: 20110601
  6. OMERAN [Concomitant]
     Indication: PROPHYLAXIS
     Route: 048

REACTIONS (12)
  - Insomnia [Not Recovered/Not Resolved]
  - Sneezing [Recovered/Resolved]
  - Hypersensitivity [Not Recovered/Not Resolved]
  - Ocular hyperaemia [Recovered/Resolved]
  - Vitamin D deficiency [Recovering/Resolving]
  - Visual impairment [Not Recovered/Not Resolved]
  - Hormone level abnormal [Not Recovered/Not Resolved]
  - Dyslipidaemia [Not Recovered/Not Resolved]
  - Blood calcium decreased [Recovering/Resolving]
  - Gait disturbance [Recovering/Resolving]
  - Cholesterolosis bulbi [Recovering/Resolving]
  - Tendon disorder [Recovered/Resolved]

NARRATIVE: CASE EVENT DATE: 2014
